FAERS Safety Report 24293466 (Version 1)
Quarter: 2024Q3

REPORT INFORMATION
  Report Type: Spontaneous
  Country: US (occurrence: None)
  Receive Date: 20240906
  Receipt Date: 20240906
  Transmission Date: 20241017
  Serious: No
  Sender: DOMPE FARMACEUTICI
  Company Number: US-FARMAPROD-202308-202401-0189

PATIENT
  Sex: Female

DRUGS (24)
  1. OXERVATE [Suspect]
     Active Substance: CENEGERMIN-BKBJ
     Indication: Neurotrophic keratopathy
     Route: 047
     Dates: start: 20240109
  2. OXERVATE [Suspect]
     Active Substance: CENEGERMIN-BKBJ
  3. GEMTESA [Concomitant]
     Active Substance: VIBEGRON
  4. GLUCOSAMINE/CHONDROITIN [Concomitant]
  5. ALOE VERA LEAF [Concomitant]
     Active Substance: ALOE VERA LEAF
     Dosage: 200:1
  6. BENEFIBER [Concomitant]
     Active Substance: STARCH, WHEAT
     Dosage: 3 G/3.8 G
  7. METAMUCIL [Concomitant]
     Active Substance: PLANTAGO SEED
  8. MIRALAX [Concomitant]
     Active Substance: POLYETHYLENE GLYCOL 3350
  9. VITAMIN D2 [Concomitant]
     Active Substance: ERGOCALCIFEROL
  10. VITAMIN C [Concomitant]
     Active Substance: ASCORBIC ACID
  11. COENZYME Q10 [Concomitant]
     Active Substance: DIETARY SUPPLEMENT\UBIDECARENONE
  12. TIMOLOL MALEATE [Concomitant]
     Active Substance: TIMOLOL MALEATE
  13. PREDNISOLONE/BROMFENAC [Concomitant]
  14. BRINZOLAMIDE [Concomitant]
     Active Substance: BRINZOLAMIDE
  15. LOTEMAX [Concomitant]
     Active Substance: LOTEPREDNOL ETABONATE
  16. COMBIGAN [Concomitant]
     Active Substance: BRIMONIDINE TARTRATE\TIMOLOL MALEATE
     Dosage: 0.2% - 0.5%
  17. VIGAMOX [Concomitant]
     Active Substance: MOXIFLOXACIN HYDROCHLORIDE
  18. MINERALS\VITAMINS [Concomitant]
     Active Substance: MINERALS\VITAMINS
  19. CELEBREX [Concomitant]
     Active Substance: CELECOXIB
  20. PEPCID AC [Concomitant]
     Active Substance: FAMOTIDINE
  21. OMEPRAZOLE [Concomitant]
     Active Substance: OMEPRAZOLE
  22. ZETIA [Concomitant]
     Active Substance: EZETIMIBE
  23. RITUXAN [Concomitant]
     Active Substance: RITUXIMAB
     Dosage: VIAL
  24. AZATHIOPRINE [Concomitant]
     Active Substance: AZATHIOPRINE

REACTIONS (6)
  - Device use issue [Unknown]
  - Off label use [Unknown]
  - Accidental overdose [Unknown]
  - Drug ineffective [Unknown]
  - Eye pain [Not Recovered/Not Resolved]
  - Eye infection [Unknown]
